FAERS Safety Report 9893210 (Version 2)
Quarter: 2014Q1

REPORT INFORMATION
  Report Type: Spontaneous
  Country: US (occurrence: US)
  Receive Date: 20140213
  Receipt Date: 20140213
  Transmission Date: 20141002
  Serious: Yes (Death)
  Sender: FDA-Public Use
  Company Number: US-MYLANLABS-2014S1002160

PATIENT
  Age: 20 Year
  Sex: Male

DRUGS (1)
  1. FENTANYL TRANSDERMAL SYSTEM [Suspect]
     Route: 055

REACTIONS (3)
  - Overdose [Fatal]
  - Intentional drug misuse [Fatal]
  - Incorrect route of drug administration [Fatal]
